FAERS Safety Report 25900068 (Version 1)
Quarter: 2025Q4

REPORT INFORMATION
  Report Type: Report from Study
  Country: US (occurrence: US)
  Receive Date: 20251009
  Receipt Date: 20251009
  Transmission Date: 20260118
  Serious: No
  Sender: SANDOZ
  Company Number: US-SANDOZ-SDZ2025US073672

PATIENT
  Age: 39 Year
  Sex: Male

DRUGS (2)
  1. HYRIMOZ [Suspect]
     Active Substance: ADALIMUMAB-ADAZ
     Indication: Hidradenitis
     Dosage: 40 MG, QW,0.4 ML
     Route: 058
     Dates: start: 202402
  2. HYRIMOZ [Suspect]
     Active Substance: ADALIMUMAB-ADAZ
     Indication: Hidradenitis
     Dosage: 40 MG, QW,0.4 ML
     Route: 058
     Dates: start: 202402

REACTIONS (3)
  - Injection site haemorrhage [Not Recovered/Not Resolved]
  - Exposure via skin contact [Unknown]
  - Device malfunction [Unknown]

NARRATIVE: CASE EVENT DATE: 20251002
